FAERS Safety Report 20225100 (Version 2)
Quarter: 2022Q1

REPORT INFORMATION
  Report Type: Spontaneous
  Country: JP (occurrence: JP)
  Receive Date: 20211223
  Receipt Date: 20220124
  Transmission Date: 20220423
  Serious: Yes (Other)
  Sender: FDA-Public Use
  Company Number: JP-NOVARTISPH-NVSJ2021JP021084

PATIENT
  Age: 65 Year
  Sex: Male

DRUGS (12)
  1. ENTRESTO [Suspect]
     Active Substance: SACUBITRIL\VALSARTAN
     Indication: Cardiac failure chronic
     Dosage: 100 MG
     Route: 048
     Dates: start: 20210201
  2. ENTRESTO [Suspect]
     Active Substance: SACUBITRIL\VALSARTAN
     Indication: Hypertension
     Dosage: 200 MG
     Route: 048
     Dates: start: 20210513
  3. CILNIDIPINE [Concomitant]
     Active Substance: CILNIDIPINE
     Indication: Product used for unknown indication
     Dosage: 5 MG
     Route: 065
     Dates: start: 20210201
  4. CILNIDIPINE [Concomitant]
     Active Substance: CILNIDIPINE
     Dosage: 10 MG
     Route: 065
     Dates: start: 20210225
  5. CARVEDILOL [Concomitant]
     Active Substance: CARVEDILOL
     Indication: Product used for unknown indication
     Dosage: 2.5 MG
     Route: 065
     Dates: start: 20210201
  6. CARVEDILOL [Concomitant]
     Active Substance: CARVEDILOL
     Dosage: 5 MG
     Route: 065
     Dates: start: 20210213
  7. CARVEDILOL [Concomitant]
     Active Substance: CARVEDILOL
     Dosage: 10 MG
     Route: 065
  8. EMPAGLIFLOZIN [Concomitant]
     Active Substance: EMPAGLIFLOZIN
     Indication: Product used for unknown indication
     Dosage: 10 MG
     Route: 065
     Dates: start: 20210201
  9. EMPAGLIFLOZIN [Concomitant]
     Active Substance: EMPAGLIFLOZIN
     Dosage: 25 MG
     Route: 065
     Dates: start: 20210308
  10. LINAGLIPTIN [Concomitant]
     Active Substance: LINAGLIPTIN
     Indication: Product used for unknown indication
     Dosage: 5 MG
     Route: 065
     Dates: start: 20210213
  11. TORSEMIDE [Concomitant]
     Active Substance: TORSEMIDE
     Indication: Product used for unknown indication
     Dosage: 4 MG
     Route: 065
     Dates: start: 20210213
  12. IVABRADINE [Concomitant]
     Active Substance: IVABRADINE
     Indication: Product used for unknown indication
     Dosage: 5 MG
     Route: 065
     Dates: start: 20210308

REACTIONS (6)
  - Cerebral infarction [Unknown]
  - Hypoaesthesia [Unknown]
  - Dysarthria [Unknown]
  - Carotid artery stenosis [Unknown]
  - Coronary artery occlusion [Unknown]
  - Peripheral arterial occlusive disease [Unknown]

NARRATIVE: CASE EVENT DATE: 20210601
